FAERS Safety Report 25938532 (Version 2)
Quarter: 2025Q4

REPORT INFORMATION
  Report Type: Spontaneous
  Country: CA (occurrence: CA)
  Receive Date: 20251019
  Receipt Date: 20251110
  Transmission Date: 20260118
  Serious: Yes (Other)
  Sender: CELLTRION
  Company Number: CA-CELLTRION INC.-2025CA037584

PATIENT

DRUGS (2)
  1. INFLIXIMAB [Suspect]
     Active Substance: INFLIXIMAB
     Indication: Crohn^s disease
     Dosage: 300 MG, EVERY 8 WEEKS (MAINTENANCE)
     Route: 042
     Dates: start: 20250814
  2. INFLIXIMAB [Suspect]
     Active Substance: INFLIXIMAB
     Dosage: NEW DOSE: REMDANTRY - MAINTENANCE - 10MG/KG - IV (INTRAVENOUS) EVERY 8 WEEKS
     Route: 042

REACTIONS (2)
  - Uterine dilation and curettage [Unknown]
  - Off label use [Unknown]

NARRATIVE: CASE EVENT DATE: 20250101
